FAERS Safety Report 8400077-2 (Version None)
Quarter: 2012Q2

REPORT INFORMATION
  Report Type: 
  Country: None (occurrence: None)
  Receive Date: 20120531
  Receipt Date: 20120529
  Transmission Date: 20120825
  Serious: No
  Sender: FDA-Public Use
  Company Number: US-ENDO PHARMACEUTICALS INC.-OPIR20120098

PATIENT
  Sex: Female

DRUGS (3)
  1. FENTANYL-100 [Suspect]
     Indication: DRUG ABUSE
     Dosage: UNKNOWN
     Route: 062
  2. BUTRANS [Suspect]
     Indication: PRODUCT USED FOR UNKNOWN INDICATION
     Dosage: UNKNOWN
     Route: 062
  3. OPANA [Suspect]
     Indication: DRUG ABUSE
     Dosage: UNKNOWN
     Route: 048

REACTIONS (1)
  - DRUG ABUSE [None]
